FAERS Safety Report 22110842 (Version 1)
Quarter: 2023Q1

REPORT INFORMATION
  Report Type: Spontaneous
  Country: US (occurrence: None)
  Receive Date: 20230316
  Receipt Date: 20230316
  Transmission Date: 20230417
  Serious: Yes (Other)
  Sender: FDA-Public Use
  Company Number: None

PATIENT
  Age: 79 Year
  Sex: Female
  Weight: 63.5 kg

DRUGS (1)
  1. PANTOPRAZOLE [Suspect]
     Active Substance: PANTOPRAZOLE
     Indication: Oesophageal dysplasia
     Dates: start: 2020, end: 20220228

REACTIONS (4)
  - Hypokinesia [None]
  - Bone disorder [None]
  - Muscular weakness [None]
  - Hip fracture [None]

NARRATIVE: CASE EVENT DATE: 20221001
